FAERS Safety Report 9738968 (Version 2)
Quarter: 2013Q4

REPORT INFORMATION
  Report Type: Spontaneous
  Country: FR (occurrence: FR)
  Receive Date: 20131209
  Receipt Date: 20131227
  Transmission Date: 20140711
  Serious: Yes (Death)
  Sender: FDA-Public Use
  Company Number: PHHY2013FR142114

PATIENT
  Age: 41 Year
  Sex: Female

DRUGS (15)
  1. TRILEPTAL [Suspect]
     Dosage: 600 MG, UNK
     Route: 048
  2. FLUOXETINE [Suspect]
     Dosage: UNK UKN, UNK
  3. NIZORAL [Suspect]
     Indication: PITUITARY-DEPENDENT CUSHING^S SYNDROME
     Dosage: 200 MG, BID
     Dates: start: 20131024
  4. DUROGESIC [Suspect]
     Dosage: 2.1MG/5.25CM3 (12 UG/HOUR)
     Route: 062
  5. ACTISKENAN [Suspect]
     Dosage: 5 MG, UNK
     Route: 048
  6. LASILIX [Suspect]
     Dosage: 40 MG, UNK
     Route: 048
  7. LEVOTHYROX [Suspect]
     Dosage: 75 UG, UNK
     Route: 048
  8. NOCTAMIDE [Suspect]
     Dosage: 2 MG, UNK
     Route: 048
  9. ATARAX /CAN/ [Suspect]
     Dosage: 25 MG, UNK
     Route: 048
  10. SERESTA [Suspect]
     Dosage: 50 MG, UNK
     Route: 048
  11. MOVICOL [Suspect]
     Dosage: UNK UKN, UNK
  12. FUNGIZONE [Suspect]
     Dosage: 10%
  13. GAVISCON /GFR/ [Suspect]
     Dosage: UNK UKN, UNK
  14. THERALENE [Suspect]
     Dosage: 5 MG, UNK
     Route: 048
  15. NOZINAN /NET/ [Suspect]
     Dosage: 100 MG, UNK
     Route: 048

REACTIONS (1)
  - Death [Fatal]
